FAERS Safety Report 18490578 (Version 1)
Quarter: 2020Q4

REPORT INFORMATION
  Report Type: Spontaneous
  Country: FR (occurrence: FR)
  Receive Date: 20201111
  Receipt Date: 20201111
  Transmission Date: 20210114
  Serious: Yes (Disabling, Other)
  Sender: FDA-Public Use
  Company Number: FR-PFIZER INC-2017062530

PATIENT
  Age: 27 Year
  Sex: Female
  Weight: 42 kg

DRUGS (4)
  1. VFEND [Suspect]
     Active Substance: VORICONAZOLE
     Indication: PROPHYLAXIS AGAINST TRANSPLANT REJECTION
     Dosage: UNK
     Route: 042
     Dates: start: 20070704, end: 20070716
  2. CIFLOX [CIPROFLOXACIN HYDROCHLORIDE] [Concomitant]
     Active Substance: CIPROFLOXACIN HYDROCHLORIDE
     Dosage: UNK
  3. FORTUM [CEFTAZIDIME] [Concomitant]
     Active Substance: CEFTAZIDIME
     Dosage: UNK
  4. SPORANOX [Concomitant]
     Active Substance: ITRACONAZOLE
     Indication: PROPHYLAXIS
     Dosage: UNK

REACTIONS (4)
  - Visual acuity reduced [Not Recovered/Not Resolved]
  - Optic neuropathy [Not Recovered/Not Resolved]
  - Papilloedema [Not Recovered/Not Resolved]
  - Optic ischaemic neuropathy [Not Recovered/Not Resolved]

NARRATIVE: CASE EVENT DATE: 200707
